FAERS Safety Report 9668710 (Version 1)
Quarter: 2013Q4

REPORT INFORMATION
  Report Type: Spontaneous
  Country: US (occurrence: None)
  Receive Date: 20131104
  Receipt Date: 20131104
  Transmission Date: 20140711
  Serious: No
  Sender: FDA-Public Use
  Company Number: None

PATIENT
  Age: 48 Year
  Sex: Female
  Weight: 80.74 kg

DRUGS (1)
  1. KETOCONAZOLE [Suspect]
     Indication: ALOPECIA
     Dosage: TWICE A WEEK, AS NEEDED, APPLIED TO A SURFACE, USUALLY THE SKIN
     Dates: start: 20130811, end: 20130922

REACTIONS (8)
  - Erythema [None]
  - Pruritus [None]
  - Skin exfoliation [None]
  - Rash [None]
  - Skin disorder [None]
  - Skin irritation [None]
  - Drug hypersensitivity [None]
  - Dermatitis [None]
